FAERS Safety Report 25662684 (Version 1)
Quarter: 2025Q3

REPORT INFORMATION
  Report Type: Spontaneous
  Country: US (occurrence: US)
  Receive Date: 20250811
  Receipt Date: 20250811
  Transmission Date: 20251020
  Serious: No
  Sender: ROCHE
  Company Number: US-ROCHE-10000355613

PATIENT
  Sex: Female

DRUGS (1)
  1. ESBRIET [Suspect]
     Active Substance: PIRFENIDONE
     Indication: Product used for unknown indication
     Route: 065

REACTIONS (3)
  - Visual impairment [Unknown]
  - Macular degeneration [Unknown]
  - Memory impairment [Unknown]

NARRATIVE: CASE EVENT DATE: 20230801
